FAERS Safety Report 4333358-2 (Version None)
Quarter: 2004Q2

REPORT INFORMATION
  Report Type: 
  Country: None (occurrence: None)
  Receive Date: 20040406
  Receipt Date: 20040329
  Transmission Date: 20050107
  Serious: Yes (Hospitalization)
  Sender: FDA-Public Use
  Company Number: FR-MERCK-0403FRA00120

PATIENT
  Age: 84 Year
  Sex: Female

DRUGS (2)
  1. GINKGO BILOBA EXTRACT [Concomitant]
     Route: 048
  2. VIOXX [Suspect]
     Indication: OSTEOARTHRITIS
     Route: 048
     Dates: start: 20040101, end: 20040101

REACTIONS (5)
  - GASTRIC ULCER [None]
  - GASTROENTERITIS [None]
  - MELAENA [None]
  - NAUSEA [None]
  - VOMITING [None]
